FAERS Safety Report 8484983-9 (Version None)
Quarter: 2012Q3

REPORT INFORMATION
  Report Type: 
  Country: None (occurrence: None)
  Receive Date: 20120703
  Receipt Date: 20120629
  Transmission Date: 20120928
  Serious: Yes (Other)
  Sender: FDA-Public Use
  Company Number: JP-PFIZER INC-2012114842

PATIENT
  Age: 27 Year
  Sex: Male
  Weight: 104 kg

DRUGS (3)
  1. DIFLUNISAL [Concomitant]
     Dosage: UNK, 1X/DAY
     Route: 048
  2. VARENICLINE TARTRATE [Suspect]
     Dosage: 1 MG, 2X/DAY
     Route: 048
     Dates: start: 20120404, end: 20120508
  3. VARENICLINE TARTRATE [Suspect]
     Dosage: 0.5 MG,ONCE OR TWICE A DAY
     Route: 048
     Dates: start: 20120322, end: 20120403

REACTIONS (4)
  - PANIC REACTION [None]
  - AGGRESSION [None]
  - MENTAL DISORDER [None]
  - AGITATION [None]
